FAERS Safety Report 18597367 (Version 1)
Quarter: 2020Q4

REPORT INFORMATION
  Report Type: Spontaneous
  Country: US (occurrence: US)
  Receive Date: 20201209
  Receipt Date: 20201209
  Transmission Date: 20210114
  Serious: No
  Sender: FDA-Public Use
  Company Number: US-IBSA PHARMA INC.-2019IBS000159

PATIENT

DRUGS (3)
  1. TIROSINT [Suspect]
     Active Substance: LEVOTHYROXINE SODIUM
     Indication: HYPOTHYROIDISM
     Dosage: 125MCG DAILY
     Route: 048
     Dates: start: 2019, end: 2019
  2. TIROSINT [Suspect]
     Active Substance: LEVOTHYROXINE SODIUM
     Indication: HYPOTHYROIDISM
     Dosage: 100MCG DAILY
     Route: 048
     Dates: start: 2019, end: 2019
  3. TIROSINT [Suspect]
     Active Substance: LEVOTHYROXINE SODIUM
     Indication: HYPOTHYROIDISM
     Dosage: 88MCG DAILY
     Route: 048
     Dates: start: 2019

REACTIONS (8)
  - Dysphagia [Unknown]
  - Drug level above therapeutic [Unknown]
  - Feeling abnormal [Not Recovered/Not Resolved]
  - Night sweats [Unknown]
  - Energy increased [Not Recovered/Not Resolved]
  - Chest discomfort [Recovered/Resolved]
  - Throat tightness [Unknown]
  - Anxiety [Unknown]

NARRATIVE: CASE EVENT DATE: 2019
